FAERS Safety Report 14904746 (Version 1)
Quarter: 2018Q2

REPORT INFORMATION
  Report Type: Spontaneous
  Country: US (occurrence: US)
  Receive Date: 20180517
  Receipt Date: 20180517
  Transmission Date: 20180711
  Serious: No
  Sender: FDA-Public Use
  Company Number: US-SA-2017SA201417

PATIENT

DRUGS (1)
  1. LANTUS [Suspect]
     Active Substance: INSULIN GLARGINE
     Route: 051

REACTIONS (9)
  - Product storage error [Unknown]
  - Hyperhidrosis [Unknown]
  - Feeling hot [Unknown]
  - Dysphagia [Unknown]
  - Dizziness [Unknown]
  - Asthenia [Unknown]
  - Dry mouth [Unknown]
  - Dysgeusia [Unknown]
  - Feeling abnormal [Unknown]
